FAERS Safety Report 11143402 (Version 3)
Quarter: 2015Q3

REPORT INFORMATION
  Report Type: Spontaneous
  Country: US (occurrence: US)
  Receive Date: 20150528
  Receipt Date: 20150714
  Transmission Date: 20151125
  Serious: Yes (Other)
  Sender: FDA-Public Use
  Company Number: US-009507513-1505USA008837

PATIENT
  Age: 60 Year
  Sex: Female
  Weight: 63.49 kg

DRUGS (1)
  1. BELSOMRA [Suspect]
     Active Substance: SUVOREXANT
     Indication: INSOMNIA
     Dosage: 20 MG AS NEEDED
     Route: 048
     Dates: start: 20150519, end: 20150520

REACTIONS (8)
  - Toxicity to various agents [Unknown]
  - Sedation [Recovered/Resolved]
  - Memory impairment [Recovered/Resolved]
  - Aphasia [Recovered/Resolved]
  - Mental impairment [Recovered/Resolved]
  - Inappropriate schedule of drug administration [Unknown]
  - Drug ineffective [Recovered/Resolved]
  - Therapeutic response delayed [Recovered/Resolved]

NARRATIVE: CASE EVENT DATE: 201505
